FAERS Safety Report 25706228 (Version 1)
Quarter: 2025Q3

REPORT INFORMATION
  Report Type: Spontaneous
  Country: US (occurrence: US)
  Receive Date: 20250820
  Receipt Date: 20250820
  Transmission Date: 20251021
  Serious: No
  Sender: LUNDBECK
  Company Number: US-LUNDBECK-DKLU4018340

PATIENT

DRUGS (1)
  1. VYEPTI [Suspect]
     Active Substance: EPTINEZUMAB-JJMR
     Indication: Product used for unknown indication
     Route: 041
     Dates: start: 20250808

REACTIONS (4)
  - Drug effect less than expected [Not Recovered/Not Resolved]
  - Migraine [Not Recovered/Not Resolved]
  - Neck pain [Not Recovered/Not Resolved]
  - Arthralgia [Not Recovered/Not Resolved]

NARRATIVE: CASE EVENT DATE: 20250801
